FAERS Safety Report 23530131 (Version 1)
Quarter: 2024Q1

REPORT INFORMATION
  Report Type: Spontaneous
  Country: PR (occurrence: PR)
  Receive Date: 20240216
  Receipt Date: 20240216
  Transmission Date: 20240410
  Serious: Yes (Other)
  Sender: FDA-Public Use
  Company Number: PR-BRISTOL-MYERS SQUIBB COMPANY-2024-021890

PATIENT
  Age: 72 Year
  Sex: Male
  Weight: 90.72 kg

DRUGS (1)
  1. REVLIMID [Suspect]
     Active Substance: LENALIDOMIDE
     Indication: Plasma cell myeloma
     Dosage: FREQUENCY: TAKE ONE CAPSULE DAILY FOR 21 DAYS, REST FOR A WEEK 28 DAY CYCLE.
     Route: 048
     Dates: start: 20170222, end: 202401

REACTIONS (3)
  - Myocardial infarction [Not Recovered/Not Resolved]
  - Blood viscosity increased [Not Recovered/Not Resolved]
  - Influenza [Not Recovered/Not Resolved]

NARRATIVE: CASE EVENT DATE: 20231101
